FAERS Safety Report 9181011 (Version 1)
Quarter: 2013Q1

REPORT INFORMATION
  Report Type: Spontaneous
  Country: US (occurrence: US)
  Receive Date: 20130322
  Receipt Date: 20130322
  Transmission Date: 20140127
  Serious: No
  Sender: FDA-Public Use
  Company Number: PHEH2013US006593

PATIENT
  Sex: Female

DRUGS (3)
  1. TASIGNA [Suspect]
     Indication: CHRONIC MYELOID LEUKAEMIA
     Dosage: 2 DF, BID
     Route: 048
  2. OMEPRAZOLE [Concomitant]
     Dosage: 20 MG, UNK
  3. LEXAPRO [Concomitant]
     Dosage: 5 MG, UNK

REACTIONS (3)
  - Local swelling [Unknown]
  - Dyspepsia [Unknown]
  - Abdominal distension [Unknown]
